FAERS Safety Report 5513983-3 (Version None)
Quarter: 2007Q4

REPORT INFORMATION
  Report Type: 
  Country: None (occurrence: None)
  Receive Date: 20071113
  Receipt Date: 20071105
  Transmission Date: 20080405
  Serious: Yes (Hospitalization, Other)
  Sender: FDA-Public Use
  Company Number: GR-BRISTOL-MYERS SQUIBB COMPANY-13958368

PATIENT
  Age: 77 Year
  Sex: Male

DRUGS (5)
  1. ERBITUX [Suspect]
     Indication: COLON CANCER
     Route: 042
     Dates: start: 20060810, end: 20070213
  2. IRINOTECAN HCL [Suspect]
     Indication: COLON CANCER
     Route: 042
     Dates: start: 20050719, end: 20070213
  3. FLUOROURACIL [Suspect]
     Indication: COLON CANCER
     Dosage: NO.OF DOSAGE=D1+D2
     Route: 042
     Dates: start: 20050719, end: 20070213
  4. LEUCOVORIN CALCIUM [Suspect]
     Indication: COLON CANCER
     Dosage: NO.OF DOSAGE=D1+D2
     Route: 042
     Dates: start: 20050719, end: 20070213
  5. PENMIX [Concomitant]
     Dosage: 1 DOSAGE FORM = 20 UNITS MORNING DOSE AND 10 UNITS EVENING DOSE

REACTIONS (2)
  - NEPHROTIC SYNDROME [None]
  - RENAL FAILURE ACUTE [None]
